FAERS Safety Report 6110343-1 (Version None)
Quarter: 2009Q1

REPORT INFORMATION
  Report Type: 
  Country: None (occurrence: None)
  Receive Date: 20090310
  Receipt Date: 20090306
  Transmission Date: 20090719
  Serious: Yes (Death, Hospitalization)
  Sender: FDA-Public Use
  Company Number: FR-PFIZER INC-2007093109

PATIENT

DRUGS (14)
  1. BLINDED *PLACEBO [Suspect]
     Indication: CARDIAC FAILURE
     Route: 048
     Dates: start: 20071024, end: 20071029
  2. EPLERENONE [Suspect]
     Indication: CARDIAC FAILURE
     Route: 048
     Dates: start: 20071024, end: 20071029
  3. LASIX [Concomitant]
     Route: 048
     Dates: start: 20050131
  4. COVERSYL [Concomitant]
     Route: 048
     Dates: start: 20060526, end: 20071029
  5. DIFFU K [Concomitant]
     Route: 048
     Dates: start: 20050226, end: 20071029
  6. PREVISCAN [Concomitant]
     Route: 048
     Dates: start: 20050131, end: 20071029
  7. CORDARONE [Concomitant]
     Route: 048
     Dates: start: 20060518, end: 20071029
  8. DIAMICRON [Concomitant]
     Route: 048
     Dates: start: 20050226, end: 20071029
  9. ALLOPURINOL [Concomitant]
     Route: 048
     Dates: start: 20070314, end: 20071029
  10. NEXIUM [Concomitant]
     Route: 048
     Dates: start: 20070314, end: 20071029
  11. LORAZEPAM [Concomitant]
     Route: 048
     Dates: start: 20070314, end: 20071029
  12. IMOVANE [Concomitant]
     Route: 048
     Dates: start: 20070314, end: 20071029
  13. METFORMIN HCL [Concomitant]
     Route: 048
     Dates: start: 20050226, end: 20071029
  14. CLARITIN [Concomitant]
     Route: 048
     Dates: start: 20070801, end: 20071029

REACTIONS (4)
  - CARDIAC FAILURE [None]
  - CONDITION AGGRAVATED [None]
  - HYPERKALAEMIA [None]
  - RENAL FAILURE [None]
